FAERS Safety Report 9992698 (Version 2)
Quarter: 2014Q1

REPORT INFORMATION
  Report Type: Spontaneous
  Country: US (occurrence: US)
  Receive Date: 20140310
  Receipt Date: 20140328
  Transmission Date: 20141002
  Serious: No
  Sender: FDA-Public Use
  Company Number: US-PFIZER INC-2014067316

PATIENT
  Sex: Female

DRUGS (10)
  1. ERYTHROMYCIN [Suspect]
     Dosage: UNK
  2. DETROL LA [Suspect]
     Dosage: UNK
  3. PROLOPRIM [Suspect]
     Dosage: UNK
  4. BACTRIM [Suspect]
     Dosage: UNK
  5. BUSPAR [Suspect]
     Dosage: UNK
  6. CLARITIN [Suspect]
     Dosage: UNK
  7. CYMBALTA [Suspect]
     Dosage: UNK
  8. DONNATAL [Suspect]
     Dosage: UNK
  9. LUPRON [Suspect]
     Dosage: UNK
  10. TRINALIN REPETABS [Suspect]
     Dosage: UNK

REACTIONS (1)
  - Drug hypersensitivity [Unknown]
